FAERS Safety Report 17926145 (Version 1)
Quarter: 2020Q2

REPORT INFORMATION
  Report Type: Spontaneous
  Country: DE (occurrence: DE)
  Receive Date: 20200623
  Receipt Date: 20200623
  Transmission Date: 20200714
  Serious: Yes (Hospitalization)
  Sender: FDA-Public Use
  Company Number: DE-DRREDDYS-GER/GER/20/0124228

PATIENT
  Age: 88 Year
  Sex: Female
  Weight: 60 kg

DRUGS (1)
  1. ALLOPURINOL. [Suspect]
     Active Substance: ALLOPURINOL
     Indication: PRODUCT USED FOR UNKNOWN INDICATION
     Dosage: 300 MG, 0-0-0.5-0, TABLETTEN
     Route: 048

REACTIONS (3)
  - Iron deficiency anaemia [Unknown]
  - Atrial fibrillation [Unknown]
  - Melaena [Unknown]
